FAERS Safety Report 5445345-1 (Version None)
Quarter: 2007Q3

REPORT INFORMATION
  Report Type: 
  Country: None (occurrence: None)
  Receive Date: 20070906
  Receipt Date: 20070514
  Transmission Date: 20080115
  Serious: No
  Sender: FDA-Public Use
  Company Number: A0651234A

PATIENT
  Age: 48 Year
  Sex: Female

DRUGS (5)
  1. REQUIP [Suspect]
     Indication: RESTLESS LEGS SYNDROME
     Dosage: .25MG PER DAY
     Route: 048
     Dates: start: 20060801
  2. VYTORIN [Concomitant]
  3. PREVACID [Concomitant]
  4. FEXOFENADINE [Concomitant]
  5. BIRTH CONTROL PILL [Concomitant]

REACTIONS (2)
  - DRUG INEFFECTIVE [None]
  - RESTLESS LEGS SYNDROME [None]
